FAERS Safety Report 11459506 (Version 1)
Quarter: 2015Q3

REPORT INFORMATION
  Report Type: Spontaneous
  Country: US (occurrence: US)
  Receive Date: 20150904
  Receipt Date: 20150904
  Transmission Date: 20151125
  Serious: No
  Sender: FDA-Public Use
  Company Number: US-TARO-2014TAR00162

PATIENT
  Sex: Female
  Weight: 58.5 kg

DRUGS (3)
  1. WARFARIN SODIUM TABLETS USP 5MG [Suspect]
     Active Substance: WARFARIN SODIUM
     Dosage: 37.5 MG, 1X/WEEK
     Route: 048
     Dates: start: 20140702, end: 20140716
  2. WARFARIN SODIUM TABLETS USP 5MG [Suspect]
     Active Substance: WARFARIN SODIUM
     Dosage: 40 MG, 1X/WEEK
     Route: 048
     Dates: start: 20140716
  3. WARFARIN SODIUM TABLETS USP 5MG [Suspect]
     Active Substance: WARFARIN SODIUM
     Indication: ATRIAL FIBRILLATION
     Dosage: 35 MG, 1X/WEEK
     Route: 048
     Dates: start: 20111207, end: 20140702

REACTIONS (1)
  - International normalised ratio fluctuation [Not Recovered/Not Resolved]
